FAERS Safety Report 9212912 (Version 2)
Quarter: 2013Q3

REPORT INFORMATION
  Report Type: Spontaneous
  Country: US (occurrence: US)
  Receive Date: 20120824
  Receipt Date: 20130904
  Transmission Date: 20140515
  Serious: Yes (Hospitalization)
  Sender: FDA-Public Use
  Company Number: A-US2012-62554

PATIENT
  Age: 16 Year
  Sex: Female

DRUGS (6)
  1. VELETRI [Suspect]
     Indication: PULMONARY ARTERIAL HYPERTENSION
     Route: 042
     Dates: start: 20120126
  2. COUMADIN (WARFARIN SODIUM) [Concomitant]
  3. OXYGEN (OXYGEN) [Concomitant]
  4. ADCIRCA (TADALAFIL) [Concomitant]
  5. LETAIRIS (AMBRISENTAN) (TABLETS) [Concomitant]
  6. RITUXIMAB (RITUXIMAB) [Concomitant]

REACTIONS (5)
  - Chest pain [None]
  - Dyspnoea [None]
  - Eating disorder [None]
  - Nausea [None]
  - Decreased appetite [None]
